FAERS Safety Report 18853118 (Version 1)
Quarter: 2021Q1

REPORT INFORMATION
  Report Type: Spontaneous
  Country: AT (occurrence: AT)
  Receive Date: 20210205
  Receipt Date: 20210205
  Transmission Date: 20210420
  Serious: Yes (Hospitalization, Other)
  Sender: FDA-Public Use
  Company Number: AT-MYLANLABS-2021M1007120

PATIENT
  Age: 38 Year
  Sex: Female

DRUGS (15)
  1. TEMESTA                            /00273201/ [Suspect]
     Active Substance: LORAZEPAM
     Dosage: 2.5 MILLIGRAM
     Route: 065
     Dates: start: 20200701, end: 20200702
  2. RISPERDAL [Suspect]
     Active Substance: RISPERIDONE
     Dosage: 4 MILLIGRAM
     Route: 065
     Dates: start: 20200609, end: 20200614
  3. QUILONORM                          /00033702/ [Suspect]
     Active Substance: LITHIUM CARBONATE
     Dosage: 675 MILLIGRAM
     Route: 065
     Dates: start: 20200623, end: 20200706
  4. RISPERDAL [Suspect]
     Active Substance: RISPERIDONE
     Dosage: 6 MILLIGRAM
     Route: 065
     Dates: start: 20200616, end: 20200628
  5. QUILONORM                          /00033702/ [Suspect]
     Active Substance: LITHIUM CARBONATE
     Dosage: 225 MILLIGRAM
     Route: 065
     Dates: start: 20200619, end: 20200621
  6. TEMESTA                            /00273201/ [Suspect]
     Active Substance: LORAZEPAM
     Indication: PRODUCT USED FOR UNKNOWN INDICATION
     Dosage: 3.75 MILLIGRAM
     Route: 065
     Dates: start: 20200618, end: 20200624
  7. RISPERDAL [Suspect]
     Active Substance: RISPERIDONE
     Dosage: 4.5 MILLIGRAM
     Route: 065
     Dates: start: 20200629, end: 20200706
  8. QUILONORM                          /00033702/ [Suspect]
     Active Substance: LITHIUM CARBONATE
     Indication: PRODUCT USED FOR UNKNOWN INDICATION
     Dosage: 450 MILLIGRAM
     Route: 065
     Dates: start: 20200622, end: 20200622
  9. TEMESTA                            /00273201/ [Suspect]
     Active Substance: LORAZEPAM
     Dosage: 1.5 MILLIGRAM
     Route: 065
     Dates: start: 20200703, end: 20200706
  10. RISPERDAL [Suspect]
     Active Substance: RISPERIDONE
     Dosage: 3 MILLIGRAM
     Route: 065
     Dates: start: 20200608, end: 20200608
  11. CANDESARTAN. [Suspect]
     Active Substance: CANDESARTAN
     Indication: PRODUCT USED FOR UNKNOWN INDICATION
     Dosage: 16 MILLIGRAM
     Route: 065
  12. TEMESTA                            /00273201/ [Suspect]
     Active Substance: LORAZEPAM
     Dosage: 3.5 MILLIGRAM
     Route: 065
     Dates: start: 20200625, end: 20200629
  13. TEMESTA                            /00273201/ [Suspect]
     Active Substance: LORAZEPAM
     Dosage: 3 MILLIGRAM
     Route: 065
     Dates: start: 20200630, end: 20200630
  14. TEMESTA                            /00273201/ [Suspect]
     Active Substance: LORAZEPAM
     Dosage: 5 MILLIGRAM
     Route: 065
     Dates: start: 20200608, end: 20200617
  15. RISPERDAL [Suspect]
     Active Substance: RISPERIDONE
     Indication: SCHIZOAFFECTIVE DISORDER
     Dosage: 5 MILLIGRAM
     Route: 065
     Dates: start: 20200615, end: 20200615

REACTIONS (2)
  - Galactorrhoea [Recovered/Resolved]
  - Hospitalisation [Unknown]

NARRATIVE: CASE EVENT DATE: 20200628
